FAERS Safety Report 14611194 (Version 2)
Quarter: 2018Q1

REPORT INFORMATION
  Report Type: Spontaneous
  Country: BR (occurrence: BR)
  Receive Date: 20180308
  Receipt Date: 20180315
  Transmission Date: 20180509
  Serious: Yes (Other)
  Sender: FDA-Public Use
  Company Number: BR-AMGEN-BRASP2018026541

PATIENT
  Age: 39 Year
  Sex: Female

DRUGS (3)
  1. ENBREL [Suspect]
     Active Substance: ETANERCEPT
     Indication: RHEUMATOID ARTHRITIS
     Dosage: 50 MG, ONE ADMINISTRATED WEEKLY
     Route: 065
  2. LEFLUNOMIDE. [Concomitant]
     Active Substance: LEFLUNOMIDE
     Dosage: UNK
  3. CALCIUM [Concomitant]
     Active Substance: CALCIUM
     Dosage: UNK

REACTIONS (10)
  - Injection site pain [Recovered/Resolved]
  - Abdominal injury [Recovered/Resolved]
  - Device difficult to use [Recovered/Resolved]
  - Uveitis [Recovered/Resolved]
  - Sinusitis [Not Recovered/Not Resolved]
  - Needle issue [Recovered/Resolved]
  - Sjogren^s syndrome [Recovered/Resolved]
  - Wrong technique in device usage process [Recovered/Resolved]
  - Tooth fracture [Recovered/Resolved]
  - Keratitis [Recovered/Resolved]

NARRATIVE: CASE EVENT DATE: 201612
